FAERS Safety Report 15443829 (Version 1)
Quarter: 2018Q3

REPORT INFORMATION
  Report Type: Spontaneous
  Country: BR (occurrence: BR)
  Receive Date: 20180928
  Receipt Date: 20180928
  Transmission Date: 20181010
  Serious: Yes (Other)
  Sender: FDA-Public Use
  Company Number: BR-PFIZER INC-2018386152

PATIENT
  Sex: Male

DRUGS (1)
  1. FRONTAL SL [Suspect]
     Active Substance: ALPRAZOLAM
     Dosage: UNK
     Dates: start: 2016

REACTIONS (2)
  - Hiatus hernia [Unknown]
  - Dysphagia [Unknown]
